FAERS Safety Report 7223607-5 (Version None)
Quarter: 2011Q1

REPORT INFORMATION
  Report Type: 
  Country: None (occurrence: None)
  Receive Date: 20110112
  Receipt Date: 20100908
  Transmission Date: 20110831
  Serious: No
  Sender: FDA-Public Use
  Company Number: US-ALLERGAN-1011563US

PATIENT
  Sex: Female

DRUGS (2)
  1. HYPERTENSION DRUG (3 DIFFERENT ONES) [Concomitant]
     Indication: HYPERTENSION
  2. RESTASIS [Suspect]
     Indication: DRY EYE
     Dosage: 1 GTT, BID
     Route: 047
     Dates: start: 20100901

REACTIONS (2)
  - EYE SWELLING [None]
  - MASS [None]
